FAERS Safety Report 6816128-2 (Version None)
Quarter: 2010Q3

REPORT INFORMATION
  Report Type: 
  Country: None (occurrence: None)
  Receive Date: 20100702
  Receipt Date: 20100702
  Transmission Date: 20110219
  Serious: No
  Sender: FDA-Public Use
  Company Number: None

PATIENT
  Age: 39 Year
  Sex: Female
  Weight: 92.0802 kg

DRUGS (1)
  1. ALLI [Suspect]
     Indication: METABOLIC SYNDROME
     Dosage: ONE PILL 2 PO
     Route: 048
     Dates: start: 20100623, end: 20100701

REACTIONS (1)
  - CONSTIPATION [None]
